FAERS Safety Report 16232219 (Version 1)
Quarter: 2019Q2

REPORT INFORMATION
  Report Type: Spontaneous
  Country: IN (occurrence: IN)
  Receive Date: 20190424
  Receipt Date: 20190424
  Transmission Date: 20190711
  Serious: Yes (Death, Life-Threatening, Hospitalization, Other)
  Sender: FDA-Public Use
  Company Number: IN-ACCORD-123125

PATIENT
  Age: 28 Year
  Sex: Male

DRUGS (3)
  1. TACROLIMUS. [Suspect]
     Active Substance: TACROLIMUS
     Indication: IMMUNOSUPPRESSANT DRUG THERAPY
  2. MYCOPHENOLIC ACID. [Suspect]
     Active Substance: MYCOPHENOLIC ACID
     Indication: IMMUNOSUPPRESSANT DRUG THERAPY
  3. PREDNISOLONE. [Suspect]
     Active Substance: PREDNISOLONE
     Indication: IMMUNOSUPPRESSANT DRUG THERAPY

REACTIONS (11)
  - Human polyomavirus infection [Fatal]
  - Azotaemia [Fatal]
  - Shock [Fatal]
  - Lower gastrointestinal haemorrhage [Fatal]
  - Hypochromic anaemia [Fatal]
  - Ulcer [Fatal]
  - Intestinal tuberculosis [Fatal]
  - Acinetobacter infection [Fatal]
  - Pleural effusion [Fatal]
  - Anuria [Fatal]
  - Sepsis [Fatal]
